FAERS Safety Report 11285820 (Version 3)
Quarter: 2015Q4

REPORT INFORMATION
  Report Type: Spontaneous
  Country: JP (occurrence: JP)
  Receive Date: 20150721
  Receipt Date: 20151022
  Transmission Date: 20160304
  Serious: Yes (Hospitalization, Other)
  Sender: FDA-Public Use
  Company Number: JP-ORION CORPORATION ORION PHARMA-ENT 2015-0947

PATIENT
  Age: 55 Year
  Sex: Female
  Weight: 39 kg

DRUGS (10)
  1. CABASER [Suspect]
     Active Substance: CABERGOLINE
     Indication: PARKINSON^S DISEASE
     Route: 048
     Dates: end: 20140915
  2. COMTAN [Suspect]
     Active Substance: ENTACAPONE
     Indication: PARKINSON^S DISEASE
     Dosage: STRENGTH: 100 MG
     Route: 048
  3. CABASER [Suspect]
     Active Substance: CABERGOLINE
     Dosage: REDUCED DOSE
     Route: 048
     Dates: start: 20140916, end: 20141014
  4. MADOPAR [Concomitant]
     Active Substance: BENSERAZIDE HYDROCHLORIDE\LEVODOPA
     Route: 065
  5. ARTANE [Concomitant]
     Active Substance: TRIHEXYPHENIDYL HYDROCHLORIDE
     Route: 065
     Dates: end: 20150317
  6. SYMMETREL [Concomitant]
     Active Substance: AMANTADINE HYDROCHLORIDE
     Route: 065
     Dates: start: 20141209
  7. COMTAN [Suspect]
     Active Substance: ENTACAPONE
     Dosage: STRENGTH: 100 MG
     Route: 048
     Dates: start: 20140715, end: 20150317
  8. EXCEGRAN [Concomitant]
     Active Substance: ZONISAMIDE
     Route: 065
     Dates: end: 20150317
  9. PERMAX [Concomitant]
     Active Substance: PERGOLIDE
     Route: 065
     Dates: end: 20150317
  10. SYMMETREL [Concomitant]
     Active Substance: AMANTADINE HYDROCHLORIDE
     Dosage: 3 DF (100 MG)
     Route: 065
     Dates: end: 20141208

REACTIONS (4)
  - Pubis fracture [Unknown]
  - Fall [Unknown]
  - Parkinson^s disease [Unknown]
  - Dyskinesia [Recovered/Resolved]

NARRATIVE: CASE EVENT DATE: 20140715
